FAERS Safety Report 9112257 (Version 1)
Quarter: 2013Q1

REPORT INFORMATION
  Report Type: Spontaneous
  Country: US (occurrence: US)
  Receive Date: 20130219
  Receipt Date: 20130219
  Transmission Date: 20140127
  Serious: No
  Sender: FDA-Public Use
  Company Number: US-BRISTOL-MYERS SQUIBB COMPANY-17017732

PATIENT
  Age: 46 Year
  Sex: Female

DRUGS (3)
  1. ORENCIA [Suspect]
     Dosage: LAST INFUSION ON 03OCT2012
     Route: 042
     Dates: start: 2011
  2. METHOTREXATE [Suspect]
  3. PREDNISONE [Suspect]

REACTIONS (2)
  - Sinusitis [Unknown]
  - Fungal infection [Unknown]
